FAERS Safety Report 9560451 (Version 1)
Quarter: 2013Q3

REPORT INFORMATION
  Report Type: Spontaneous
  Country: DE (occurrence: DE)
  Receive Date: 20130927
  Receipt Date: 20130927
  Transmission Date: 20140515
  Serious: Yes (Hospitalization)
  Sender: FDA-Public Use
  Company Number: DE-ELI_LILLY_AND_COMPANY-DE201309007058

PATIENT
  Age: 78 Year
  Sex: Female
  Weight: 100 kg

DRUGS (7)
  1. CYMBALTA [Suspect]
     Dosage: 30 MG, UNKNOWN
     Route: 048
     Dates: start: 201304
  2. DIPIPERON [Suspect]
     Dosage: 20 MG, UNKNOWN
     Route: 048
     Dates: start: 201304
  3. RISPERDAL [Suspect]
     Dosage: 0.5 MG, UNKNOWN
     Route: 048
     Dates: start: 201304
  4. ARICEPT [Suspect]
     Dosage: 5 MG, UNKNOWN
     Route: 048
     Dates: start: 201304, end: 20130905
  5. DELIX [Concomitant]
     Dosage: UNK UNK, UNKNOWN
     Route: 048
  6. AMLODIPINE [Concomitant]
     Dosage: UNK UNK, UNKNOWN
     Route: 048
  7. CALCIVIT D [Concomitant]
     Dosage: UNK UNK, UNKNOWN
     Route: 048

REACTIONS (2)
  - Pancreatitis haemorrhagic [Not Recovered/Not Resolved]
  - Pancreatitis necrotising [Not Recovered/Not Resolved]
